FAERS Safety Report 24186625 (Version 4)
Quarter: 2024Q3

REPORT INFORMATION
  Report Type: Spontaneous
  Country: US (occurrence: US)
  Receive Date: 20240808
  Receipt Date: 20240927
  Transmission Date: 20241017
  Serious: No
  Sender: BIOVITRUM
  Company Number: US-BIOVITRUM-2024-US-010702

PATIENT
  Age: 82 Year
  Sex: Female

DRUGS (14)
  1. VONJO [Suspect]
     Active Substance: PACRITINIB
     Indication: Thrombocytosis
     Dosage: ONCE DAILY ALTERNATING WITH 1 CAPSULE TWICE DAILY
     Route: 048
     Dates: start: 202204
  2. VONJO [Suspect]
     Active Substance: PACRITINIB
     Indication: Myelofibrosis
     Dosage: 100/200 MG,?ONE CAPSULE DAILY ALTERNATING WITH 1 CAPSULE TWICE DAILY
     Route: 048
     Dates: start: 202204
  3. REVLIMID [Suspect]
     Active Substance: LENALIDOMIDE
     Indication: Product used for unknown indication
  4. ACETAMINOPHEN [Concomitant]
     Active Substance: ACETAMINOPHEN
     Indication: Product used for unknown indication
  5. AMLODIPINE [Concomitant]
     Active Substance: AMLODIPINE BESYLATE
     Indication: Product used for unknown indication
  6. COLACE [Concomitant]
     Active Substance: DOCUSATE SODIUM
     Indication: Product used for unknown indication
  7. MAGNESIUM [Concomitant]
     Active Substance: MAGNESIUM
     Indication: Product used for unknown indication
  8. MIRALAX [Concomitant]
     Active Substance: POLYETHYLENE GLYCOL 3350
     Indication: Product used for unknown indication
  9. VITAMINS [Concomitant]
     Active Substance: VITAMINS
     Indication: Product used for unknown indication
  10. DIETARY SUPPLEMENT [Concomitant]
     Active Substance: DIETARY SUPPLEMENT
     Indication: Product used for unknown indication
  11. SPIRIVA [Concomitant]
     Active Substance: TIOTROPIUM BROMIDE MONOHYDRATE
     Indication: Product used for unknown indication
  12. VITAMIN D3 [Concomitant]
     Active Substance: CHOLECALCIFEROL
     Indication: Product used for unknown indication
  13. ZETIA [Concomitant]
     Active Substance: EZETIMIBE
     Indication: Product used for unknown indication
  14. ZYRTEC [Concomitant]
     Active Substance: CETIRIZINE HYDROCHLORIDE
     Indication: Product used for unknown indication

REACTIONS (6)
  - Off label use [Not Recovered/Not Resolved]
  - Feeling hot [Not Recovered/Not Resolved]
  - Osteoarthritis [Unknown]
  - Dry skin [Unknown]
  - SARS-CoV-2 test positive [Not Recovered/Not Resolved]
  - Platelet count abnormal [Unknown]

NARRATIVE: CASE EVENT DATE: 20220401
